FAERS Safety Report 23023532 (Version 2)
Quarter: 2023Q4

REPORT INFORMATION
  Report Type: Spontaneous
  Country: CN (occurrence: None)
  Receive Date: 20231003
  Receipt Date: 20231018
  Transmission Date: 20240109
  Serious: Yes (Other)
  Sender: FDA-Public Use
  Company Number: 2023A223663

PATIENT
  Age: 21046 Day
  Sex: Male
  Weight: 77 kg

DRUGS (2)
  1. DAPAGLIFLOZIN [Suspect]
     Active Substance: DAPAGLIFLOZIN
     Indication: Type 2 diabetes mellitus
     Route: 048
  2. COVERAM [Concomitant]
     Active Substance: AMLODIPINE\PERINDOPRIL
     Indication: Hypertension

REACTIONS (2)
  - Glucose urine present [Recovering/Resolving]
  - Urine ketone body present [Recovering/Resolving]

NARRATIVE: CASE EVENT DATE: 20230924
